FAERS Safety Report 24087815 (Version 1)
Quarter: 2024Q3

REPORT INFORMATION
  Report Type: Spontaneous
  Country: DE (occurrence: DE)
  Receive Date: 20240715
  Receipt Date: 20240715
  Transmission Date: 20241017
  Serious: Yes (Other)
  Sender: PHARMAESSENTIA
  Company Number: DE-PHARMAESSENTIA-DE-2024-PEC-004002

PATIENT
  Age: 36 Year
  Sex: Female

DRUGS (7)
  1. BESREMI [Suspect]
     Active Substance: ROPEGINTERFERON ALFA-2B-NJFT
     Indication: Polycythaemia vera
     Dosage: 50 MILLIGRAM, Q2W
     Route: 058
     Dates: start: 202310
  2. BESREMI [Suspect]
     Active Substance: ROPEGINTERFERON ALFA-2B-NJFT
     Dosage: START DATE NOT REPORTED.TWO INJECTIONS AT THIS DOSE WERE ADMINISTERED.
     Route: 058
  3. BESREMI [Suspect]
     Active Substance: ROPEGINTERFERON ALFA-2B-NJFT
     Dosage: IN FEB-2024, BESREMI THERAPY WAS TEMPORARILY INTERRUPTED TO SEE WHETHER ANY OF THE MEDICATION WAS AF
     Route: 058
     Dates: end: 202402
  4. BESREMI [Suspect]
     Active Substance: ROPEGINTERFERON ALFA-2B-NJFT
     Dosage: AT THE END OF APRIL, BESREMI WAS WITHDRAWN AGAIN.
     Route: 058
     Dates: start: 20240313, end: 202404
  5. XARELTO [Concomitant]
     Active Substance: RIVAROXABAN
     Indication: Product used for unknown indication
     Dosage: 1 X XARELTO 20MG
     Route: 065
  6. URSODIOL [Concomitant]
     Active Substance: URSODIOL
     Indication: Product used for unknown indication
     Dosage: 2 X URSOFALK 500MG
     Route: 065
  7. CARVEDILOL [Concomitant]
     Active Substance: CARVEDILOL
     Indication: Product used for unknown indication
     Dosage: ? CAREVDIOL 12,5 MG
     Route: 065

REACTIONS (6)
  - Thrombosis [Unknown]
  - Hepatic enzyme increased [Recovering/Resolving]
  - Influenza [Recovered/Resolved]
  - Fatigue [Recovered/Resolved]
  - Bone pain [Recovered/Resolved]
  - Arthralgia [Recovered/Resolved]

NARRATIVE: CASE EVENT DATE: 20230901
